FAERS Safety Report 4511810-4 (Version None)
Quarter: 2004Q4

REPORT INFORMATION
  Report Type: 
  Country: None (occurrence: None)
  Receive Date: 20041123
  Receipt Date: 20041115
  Transmission Date: 20050328
  Serious: Yes (Hospitalization, Other)
  Sender: FDA-Public Use
  Company Number: USA-2003-0010307

PATIENT
  Age: 35 Year
  Sex: Male

DRUGS (1)
  1. OXYCONTIN [Suspect]
     Indication: PAIN
     Dates: start: 20000501, end: 20030401

REACTIONS (18)
  - ASTHENIA [None]
  - CHOKING [None]
  - CONFUSIONAL STATE [None]
  - COUGH DECREASED [None]
  - DISORIENTATION [None]
  - DRUG DEPENDENCE [None]
  - DRUG TOLERANCE [None]
  - DRUG WITHDRAWAL SYNDROME [None]
  - FEELING ABNORMAL [None]
  - INFLUENZA LIKE ILLNESS [None]
  - LETHARGY [None]
  - NAUSEA [None]
  - PAIN [None]
  - PALLOR [None]
  - RESPIRATORY ARREST [None]
  - SOCIAL AVOIDANT BEHAVIOUR [None]
  - VOMITING [None]
  - WEIGHT DECREASED [None]
